FAERS Safety Report 12894619 (Version 2)
Quarter: 2016Q4

REPORT INFORMATION
  Report Type: Spontaneous
  Country: ES (occurrence: ES)
  Receive Date: 20161028
  Receipt Date: 20161207
  Transmission Date: 20170207
  Serious: Yes (Other)
  Sender: FDA-Public Use
  Company Number: ES-PFIZER INC-2016503850

PATIENT
  Age: 39 Year
  Sex: Female

DRUGS (6)
  1. BUPIVACAINE. [Suspect]
     Active Substance: BUPIVACAINE
     Indication: EPIDURAL ANALGESIA
     Dosage: 3ML BUPIVACAINE 0.25%
     Route: 008
  2. LEVOBUPIVACAINE [Suspect]
     Active Substance: LEVOBUPIVACAINE
     Indication: EPIDURAL ANALGESIA
     Dosage: 7 ML OF LEVOBUPIVACAINE 0.125%
     Route: 008
  3. FENTANYL. [Suspect]
     Active Substance: FENTANYL
     Indication: EPIDURAL ANAESTHESIA
     Dosage: 50 UG, UNK
     Route: 008
  4. FENTANYL. [Suspect]
     Active Substance: FENTANYL
     Dosage: 0.01% FENTANYL AT A RATE OF 10ML.HR (PERFUSION BY CATHETER)
  5. SODIUM CHLORIDE. [Concomitant]
     Active Substance: SODIUM CHLORIDE
     Dosage: UNK
     Route: 065
  6. ADRENALINE [Suspect]
     Active Substance: EPINEPHRINE
     Dosage: 1:200000
     Route: 008

REACTIONS (1)
  - Horner^s syndrome [Recovered/Resolved]
